FAERS Safety Report 4557959-1 (Version None)
Quarter: 2005Q1

REPORT INFORMATION
  Report Type: 
  Country: None (occurrence: None)
  Receive Date: 20050121
  Receipt Date: 20040308
  Transmission Date: 20050727
  Serious: No
  Sender: FDA-Public Use
  Company Number: US-BRISTOL-MYERS SQUIBB COMPANY-12527859

PATIENT
  Age: 13 Year
  Sex: Female

DRUGS (1)
  1. SERZONE [Suspect]
     Route: 048

REACTIONS (4)
  - DISTURBANCE IN ATTENTION [None]
  - HYPERSOMNIA [None]
  - MEDICATION ERROR [None]
  - MOOD SWINGS [None]
